FAERS Safety Report 7599146-9 (Version None)
Quarter: 2011Q3

REPORT INFORMATION
  Report Type: 
  Country: None (occurrence: None)
  Receive Date: 20110711
  Receipt Date: 20110705
  Transmission Date: 20111222
  Serious: Yes (Hospitalization)
  Sender: FDA-Public Use
  Company Number: PL-BAYER-2011-056421

PATIENT
  Age: 75 Year
  Sex: Female
  Weight: 70 kg

DRUGS (1)
  1. ULTRAVIST 150 [Suspect]
     Indication: MYOCARDIAL ISCHAEMIA
     Dosage: 200 ML, ONCE
     Route: 022
     Dates: start: 20110626, end: 20110626

REACTIONS (3)
  - VIITH NERVE PARALYSIS [None]
  - COMMUNICATION DISORDER [None]
  - ALTERED STATE OF CONSCIOUSNESS [None]
